FAERS Safety Report 15811795 (Version 3)
Quarter: 2019Q2

REPORT INFORMATION
  Report Type: Spontaneous
  Country: PL (occurrence: DK)
  Receive Date: 20190111
  Receipt Date: 20190416
  Transmission Date: 20190711
  Serious: Yes (Other)
  Sender: FDA-Public Use
  Company Number: PL-ROCHE-2241420

PATIENT
  Age: 75 Year
  Sex: Female

DRUGS (4)
  1. CICLOSPORIN [Suspect]
     Active Substance: CYCLOSPORINE
     Indication: DERMATITIS ATOPIC
     Dosage: (1.5-2.5 MG/KG/DAY)
     Route: 065
  2. CICLOSPORIN [Suspect]
     Active Substance: CYCLOSPORINE
     Dosage: 2-3 MG/KG
     Route: 065
  3. MYCOPHENOLATE MOFETIL. [Suspect]
     Active Substance: MYCOPHENOLATE MOFETIL
     Indication: DERMATITIS ATOPIC
     Dosage: UNK
     Route: 065
  4. AZATHIOPRINE. [Suspect]
     Active Substance: AZATHIOPRINE
     Indication: DERMATITIS ATOPIC
     Dosage: UNK
     Route: 065

REACTIONS (14)
  - Pruritus [Recovered/Resolved]
  - Drug ineffective [Unknown]
  - Pruritus [Unknown]
  - Condition aggravated [Unknown]
  - Cutaneous T-cell lymphoma refractory [Not Recovered/Not Resolved]
  - Dermatitis [Unknown]
  - Leukocytosis [Unknown]
  - Lymphocyte count increased [Unknown]
  - Blood immunoglobulin E increased [Unknown]
  - Eczema [Unknown]
  - Lymphocyte morphology abnormal [Unknown]
  - Dermatitis exfoliative generalised [Unknown]
  - Neutrophilia [Unknown]
  - Lymphadenopathy [Unknown]
